FAERS Safety Report 20657113 (Version 1)
Quarter: 2022Q1

REPORT INFORMATION
  Report Type: Spontaneous
  Country: CZ (occurrence: CZ)
  Receive Date: 20220331
  Receipt Date: 20220331
  Transmission Date: 20220424
  Serious: Yes (Hospitalization)
  Sender: FDA-Public Use
  Company Number: CZ-ALKEM LABORATORIES LIMITED-CZ-ALKEM-2022-02483

PATIENT
  Age: 39 Year
  Sex: Male

DRUGS (2)
  1. OLANZAPINE [Suspect]
     Active Substance: OLANZAPINE
     Indication: Extrapyramidal disorder
     Dosage: 20 MILLIGRAM, OD
     Route: 065
  2. ARIPIPRAZOLE [Suspect]
     Active Substance: ARIPIPRAZOLE
     Indication: Schizophrenia
     Dosage: 15 MILLIGRAM, OD
     Route: 065

REACTIONS (4)
  - Akathisia [Recovered/Resolved]
  - Agitation [Recovered/Resolved]
  - Tension [Recovered/Resolved]
  - Insomnia [Recovered/Resolved]
